FAERS Safety Report 13583057 (Version 1)
Quarter: 2017Q2

REPORT INFORMATION
  Report Type: Spontaneous
  Country: PE (occurrence: PE)
  Receive Date: 20170525
  Receipt Date: 20170525
  Transmission Date: 20170830
  Serious: Yes (Other)
  Sender: FDA-Public Use
  Company Number: PE-IMPAX LABORATORIES, INC-2017-IPXL-01440

PATIENT
  Age: 13 Year
  Sex: Male

DRUGS (2)
  1. PROPRANOLOL HYDROCHLORIDE IR [Suspect]
     Active Substance: PROPRANOLOL HYDROCHLORIDE
     Indication: BASEDOW^S DISEASE
     Dosage: UNK
     Route: 065
  2. METHIMAZOLE. [Suspect]
     Active Substance: METHIMAZOLE
     Indication: BASEDOW^S DISEASE
     Dosage: UNK
     Route: 065

REACTIONS (2)
  - Hyperthyroidism [Unknown]
  - Asthma [Unknown]
